FAERS Safety Report 5056738-9 (Version None)
Quarter: 2006Q2

REPORT INFORMATION
  Report Type: 
  Country: None (occurrence: None)
  Receive Date: 20060616
  Receipt Date: 20060428
  Transmission Date: 20061013
  Serious: No
  Sender: FDA-Public Use
  Company Number: 2006US000943

PATIENT
  Age: 74 Year
  Sex: Male

DRUGS (7)
  1. VESICARE [Suspect]
     Indication: URINARY INCONTINENCE
     Dosage: 5 MG, UID/QD, ORAL
     Route: 048
     Dates: start: 20060420
  2. TOPROL-XL [Concomitant]
  3. VYTORIN (SIMVASTATIN, EZETIMIBE) [Concomitant]
  4. ASPIRIN [Concomitant]
  5. MUTIVITAMIN (VITAMINS NOS) [Concomitant]
  6. ASCORBIC ACID [Concomitant]
  7. IBUPROFEN [Concomitant]

REACTIONS (2)
  - ASTHENIA [None]
  - PAIN IN EXTREMITY [None]
